FAERS Safety Report 19780364 (Version 1)
Quarter: 2021Q3

REPORT INFORMATION
  Report Type: Spontaneous
  Country: GB (occurrence: GB)
  Receive Date: 20210902
  Receipt Date: 20210902
  Transmission Date: 20211014
  Serious: Yes (Other)
  Sender: FDA-Public Use
  Company Number: GB-MYLANLABS-2021M1057433

PATIENT
  Age: 35 Year
  Sex: Female
  Weight: 62 kg

DRUGS (4)
  1. CETIRIZINE [Suspect]
     Active Substance: CETIRIZINE HYDROCHLORIDE
     Indication: PRODUCT USED FOR UNKNOWN INDICATION
     Dosage: UNK
  2. GEDAREL [Concomitant]
     Indication: ORAL CONTRACEPTION
     Dosage: UNK
  3. MODERNA COVID?19 VACCINE [Suspect]
     Active Substance: CX-024414
     Indication: PRODUCT USED FOR UNKNOWN INDICATION
     Dosage: DOSE 1
     Dates: start: 20210526
  4. MODERNA COVID?19 VACCINE [Suspect]
     Active Substance: CX-024414
     Dosage: DOSE 2
     Dates: start: 20210730

REACTIONS (4)
  - Urticaria [Recovering/Resolving]
  - Injection site erythema [Recovering/Resolving]
  - Cellulitis [Recovering/Resolving]
  - Skin reaction [Recovered/Resolved]
